FAERS Safety Report 9524948 (Version 1)
Quarter: 2013Q1

REPORT INFORMATION
  Report Type: Spontaneous
  Country: US (occurrence: None)
  Receive Date: 20130313
  Receipt Date: 20130313
  Transmission Date: 20140127
  Serious: Yes (Other)
  Sender: FDA-Public Use
  Company Number: 1000037294

PATIENT
  Age: 39 Year
  Sex: Female

DRUGS (7)
  1. SAVELLA (MILNACIPRAN HYDROCHLORIDE) (12.5 MILLIGRAM, TABLETS) [Suspect]
     Indication: FIBROMYALGIA
     Route: 048
     Dates: start: 20120721, end: 20120721
  2. XANAX (ALPRAZOLAM) (ALPRAZOLAM) [Concomitant]
  3. NEURONTIN (GABAPENTIN) (GABAPENTIN) [Concomitant]
  4. NEXIUM (ESOMEPRAZOLE) (ESOMEPRAZOLE) [Concomitant]
  5. MOBIC (MELOXICAM) (MELOXICAM) [Concomitant]
  6. B COMPLEX VITAMINS (B COMPLEX VITAMINS) (B COMPLEX VITAMINS) [Concomitant]
  7. CALCIUM WITH VITAMIN D (CALCIUM, VITAMIN D) (CALCIUM, VITAMIN D) [Concomitant]

REACTIONS (7)
  - Feeling cold [None]
  - Feeling abnormal [None]
  - Diarrhoea [None]
  - Abdominal pain [None]
  - Anxiety [None]
  - Hyperhidrosis [None]
  - Tremor [None]
